FAERS Safety Report 20624873 (Version 1)
Quarter: 2022Q1

REPORT INFORMATION
  Report Type: Spontaneous
  Country: US (occurrence: US)
  Receive Date: 20220323
  Receipt Date: 20220323
  Transmission Date: 20220423
  Serious: Yes (Other)
  Sender: FDA-Public Use
  Company Number: US-COLGATE PALMOLIVE COMPANY-20220300494

PATIENT

DRUGS (1)
  1. LADY SPEED INVISIBLE DRY ANTIPERSPIRANT DEODORANT [Suspect]
     Active Substance: ALUMINUM ZIRCONIUM TETRACHLOROHYDREX GLY
     Dosage: UNKNOWN AMOUNT, BID (MORNING AND AFTER SHOWER)
     Dates: start: 202112

REACTIONS (3)
  - Rash [Recovered/Resolved]
  - Skin haemorrhage [Recovered/Resolved]
  - Chemical burn of skin [Recovered/Resolved]

NARRATIVE: CASE EVENT DATE: 20211201
